FAERS Safety Report 4323779-6 (Version None)
Quarter: 2004Q1

REPORT INFORMATION
  Report Type: 
  Country: None (occurrence: None)
  Receive Date: 20040325
  Receipt Date: 20040325
  Transmission Date: 20041129
  Serious: No
  Sender: FDA-Public Use
  Company Number: None

PATIENT
  Age: 61 Year
  Sex: Female
  Weight: 100 kg

DRUGS (1)
  1. PROPOFOL [Suspect]
     Indication: SEDATION
     Dosage: 50 MEQ/ KG/ MIN
     Dates: start: 20040316, end: 20040318

REACTIONS (2)
  - INFUSION SITE REACTION [None]
  - WOUND [None]
